FAERS Safety Report 10344374 (Version 3)
Quarter: 2014Q3

REPORT INFORMATION
  Report Type: Report from Study
  Country: US (occurrence: US)
  Receive Date: 20140728
  Receipt Date: 20140910
  Transmission Date: 20150326
  Serious: Yes (Other)
  Sender: FDA-Public Use
  Company Number: US-ACTELION-A-US2013-92448

PATIENT
  Age: 59 Year
  Sex: Female

DRUGS (9)
  1. ZITHROMAX [Suspect]
     Active Substance: AZITHROMYCIN DIHYDRATE
     Indication: PRODUCT USED FOR UNKNOWN INDICATION
     Route: 065
  2. SILDENAFIL [Concomitant]
     Active Substance: SILDENAFIL
  3. PREDNISONE. [Concomitant]
     Active Substance: PREDNISONE
  4. THYROXINE [Concomitant]
     Active Substance: LEVOTHYROXINE
  5. DIGOXIN. [Concomitant]
     Active Substance: DIGOXIN
  6. WELCHOL [Concomitant]
     Active Substance: COLESEVELAM HYDROCHLORIDE
     Route: 048
  7. HUMIRA [Concomitant]
     Active Substance: ADALIMUMAB
     Dosage: 1 UNK, QD
     Route: 058
  8. VELETRI [Suspect]
     Active Substance: EPOPROSTENOL
     Indication: COR PULMONALE CHRONIC
     Dosage: 27 NG/KG, PER MIN
     Route: 041
     Dates: start: 20130627
  9. COUMADIN [Concomitant]
     Active Substance: WARFARIN SODIUM

REACTIONS (12)
  - Dysphagia [Unknown]
  - Sinusitis [Unknown]
  - Dysphonia [Unknown]
  - Hypersensitivity [Unknown]
  - Cellulitis pharyngeal [Unknown]
  - Ear pain [Unknown]
  - Oropharyngeal pain [Unknown]
  - Ageusia [Unknown]
  - Exposure to communicable disease [Unknown]
  - Localised infection [Unknown]
  - Anosmia [Unknown]
  - Catheter site infection [Unknown]

NARRATIVE: CASE EVENT DATE: 201406
